FAERS Safety Report 8065675-7 (Version None)
Quarter: 2012Q1

REPORT INFORMATION
  Report Type: 
  Country: None (occurrence: None)
  Receive Date: 20120124
  Receipt Date: 20120123
  Transmission Date: 20120608
  Serious: Yes (Other)
  Sender: FDA-Public Use
  Company Number: AU-PFIZER INC-2012017458

PATIENT
  Age: 81 Year
  Sex: Male

DRUGS (4)
  1. ZOLOFT [Suspect]
     Dosage: 50 MG, UNK
     Dates: start: 20111201
  2. ZOLOFT [Suspect]
     Dosage: 100 MG, UNK
     Dates: start: 20110301, end: 20111201
  3. ZOLOFT [Suspect]
     Indication: MENTAL DISORDER
     Dosage: 250 MG, UNK
  4. ZOLOFT [Suspect]
     Dosage: 50 MG, UNK

REACTIONS (3)
  - TREMOR [None]
  - HALLUCINATION [None]
  - IRRITABILITY [None]
